FAERS Safety Report 12704017 (Version 1)
Quarter: 2016Q3

REPORT INFORMATION
  Report Type: Spontaneous
  Country: US (occurrence: US)
  Receive Date: 20160831
  Receipt Date: 20160831
  Transmission Date: 20161109
  Serious: Yes (Hospitalization, Other)
  Sender: FDA-Public Use
  Company Number: US-AMNEAL PHARMACEUTICALS-2016AMN00463

PATIENT
  Sex: Male

DRUGS (8)
  1. IBUPROFEN. [Suspect]
     Active Substance: IBUPROFEN
  2. SERTRALINE [Suspect]
     Active Substance: SERTRALINE HYDROCHLORIDE
     Dosage: UNK
     Dates: start: 201204, end: 20160721
  3. TYLENOL [Suspect]
     Active Substance: ACETAMINOPHEN
  4. BUPROPION HCL EXTENDED RELEASE (SR) 150MG TABLETS (SANDOZ) [Suspect]
     Active Substance: BUPROPION HYDROCHLORIDE
  5. BENADRYL [Suspect]
     Active Substance: DIPHENHYDRAMINE HYDROCHLORIDE
  6. MELATONIN [Suspect]
     Active Substance: MELATONIN
  7. BUSPIRONE HCL 10MG (ZYDUS) [Suspect]
     Active Substance: BUSPIRONE HYDROCHLORIDE
     Dosage: UNK
     Dates: end: 20160725
  8. BUSPIRONE HCL [Suspect]
     Active Substance: BUSPIRONE HYDROCHLORIDE

REACTIONS (4)
  - Intentional overdose [None]
  - Overdose [Recovered/Resolved]
  - Hepatic enzyme increased [Unknown]
  - Suicide attempt [Recovered/Resolved]
